FAERS Safety Report 4618583-5 (Version None)
Quarter: 2005Q1

REPORT INFORMATION
  Report Type: 
  Country: None (occurrence: None)
  Receive Date: 20050324
  Receipt Date: 20050309
  Transmission Date: 20050727
  Serious: Yes (Hospitalization)
  Sender: FDA-Public Use
  Company Number: 2005000518

PATIENT
  Age: 51 Year
  Sex: Female

DRUGS (2)
  1. TARCEVA [Suspect]
     Indication: NON-SMALL CELL LUNG CANCER
     Dosage: 150 MG (QD), ORAL
     Route: 048
     Dates: start: 20041225, end: 20050101
  2. WARFARIN SODIUM [Concomitant]

REACTIONS (3)
  - CONDITION AGGRAVATED [None]
  - PERICARDIAL EFFUSION [None]
  - PLEURAL EFFUSION [None]
